FAERS Safety Report 5805383-3 (Version None)
Quarter: 2008Q3

REPORT INFORMATION
  Report Type: 
  Country: None (occurrence: None)
  Receive Date: 20080709
  Receipt Date: 20080709
  Transmission Date: 20090109
  Serious: No
  Sender: FDA-Public Use
  Company Number: None

PATIENT

DRUGS (1)
  1. LIPITOR [Suspect]
     Dosage: 1 PO A HS

REACTIONS (1)
  - LOW DENSITY LIPOPROTEIN INCREASED [None]
